FAERS Safety Report 8096345-7 (Version None)
Quarter: 2012Q1

REPORT INFORMATION
  Report Type: 
  Country: None (occurrence: None)
  Receive Date: 20120131
  Receipt Date: 20120120
  Transmission Date: 20120608
  Serious: Yes (Hospitalization)
  Sender: FDA-Public Use
  Company Number: CH-TEVA-317984ISR

PATIENT
  Age: 89 Year
  Sex: Male

DRUGS (5)
  1. MABTHERA [Suspect]
     Indication: DIFFUSE LARGE B-CELL LYMPHOMA
  2. MABTHERA [Suspect]
     Indication: B-CELL LYMPHOMA
     Route: 042
     Dates: start: 20110817
  3. RIBOMUSTIN [Suspect]
     Indication: DIFFUSE LARGE B-CELL LYMPHOMA
  4. RIBOMUSTIN [Suspect]
     Indication: B-CELL LYMPHOMA
     Route: 042
     Dates: start: 20110817
  5. REVLIMID [Suspect]
     Indication: B-CELL LYMPHOMA
     Route: 048
     Dates: start: 20110817

REACTIONS (1)
  - HAEMORRHAGE URINARY TRACT [None]
